FAERS Safety Report 10629927 (Version 1)
Quarter: 2014Q4

REPORT INFORMATION
  Report Type: Spontaneous
  Country: US (occurrence: US)
  Receive Date: 20141205
  Receipt Date: 20141205
  Transmission Date: 20150529
  Serious: Yes (Death)
  Sender: FDA-Public Use
  Company Number: US-BRISTOL-MYERS SQUIBB COMPANY-21402177

PATIENT
  Age: 88 Year
  Sex: Male

DRUGS (1)
  1. YERVOY [Suspect]
     Active Substance: IPILIMUMAB
     Indication: LYMPHOMA
     Route: 042
     Dates: start: 201407

REACTIONS (2)
  - Off label use [Unknown]
  - Malignant neoplasm progression [Fatal]
